FAERS Safety Report 9907080 (Version 2)
Quarter: 2014Q2

REPORT INFORMATION
  Report Type: Report from Study
  Country: US (occurrence: US)
  Receive Date: 20140218
  Receipt Date: 20140418
  Transmission Date: 20141212
  Serious: Yes (Other)
  Sender: FDA-Public Use
  Company Number: US-US-EMD SERONO, INC.-7270059

PATIENT
  Sex: Male

DRUGS (3)
  1. REBIF [Suspect]
     Indication: MULTIPLE SCLEROSIS
     Route: 058
     Dates: start: 20050606
  2. GABAPENTIN [Concomitant]
     Indication: NEURALGIA
  3. LYRICA [Concomitant]
     Indication: NEURALGIA

REACTIONS (5)
  - Inguinal hernia [Unknown]
  - Nerve injury [Unknown]
  - Procedural pain [Not Recovered/Not Resolved]
  - Nausea [Not Recovered/Not Resolved]
  - Neuralgia [Not Recovered/Not Resolved]
